FAERS Safety Report 19845869 (Version 1)
Quarter: 2021Q3

REPORT INFORMATION
  Report Type: Spontaneous
  Country: US (occurrence: US)
  Receive Date: 20210915
  Receipt Date: 20210915
  Transmission Date: 20211014
  Serious: Yes (Hospitalization)
  Sender: FDA-Public Use
  Company Number: None

PATIENT
  Age: 23 Year
  Sex: Male
  Weight: 57.6 kg

DRUGS (1)
  1. VINCRISTINE SULFATE 4 MG [Suspect]
     Active Substance: VINCRISTINE SULFATE
     Dates: end: 20210905

REACTIONS (6)
  - Bacillus infection [None]
  - Blood disorder [None]
  - Chills [None]
  - Dyspepsia [None]
  - Vomiting [None]
  - Pyrexia [None]

NARRATIVE: CASE EVENT DATE: 20210912
